FAERS Safety Report 5136026-2 (Version None)
Quarter: 2006Q4

REPORT INFORMATION
  Report Type: 
  Country: None (occurrence: None)
  Receive Date: 20061020
  Receipt Date: 20061004
  Transmission Date: 20070319
  Serious: Yes (Other)
  Sender: FDA-Public Use
  Company Number: 2006BL005873

PATIENT
  Age: 44 Year
  Sex: Female

DRUGS (4)
  1. MINIMS  PREDNISOLONE SODIUM PHOSPHATE [Suspect]
     Indication: ANAEMIA HAEMOLYTIC AUTOIMMUNE
     Dosage: 30 MILLIGRAMS;DAILY
  2. METHYLPREDNISOLONE [Suspect]
     Indication: ANAEMIA HAEMOLYTIC AUTOIMMUNE
     Dosage: INTRAVENOUS
     Route: 042
  3. NEOLAB COTRIMOXAZOLE [Concomitant]
  4. PREDNISOLONE [Concomitant]

REACTIONS (10)
  - BRAIN ABSCESS [None]
  - CEREBRAL DISORDER [None]
  - DISORIENTATION [None]
  - FACIAL PALSY [None]
  - HEMIPARESIS [None]
  - HEMIPLEGIA [None]
  - NEUTROPHIL COUNT INCREASED [None]
  - NOCARDIOSIS [None]
  - PLEURAL EFFUSION [None]
  - WHITE BLOOD CELL COUNT INCREASED [None]
